FAERS Safety Report 20950582 (Version 1)
Quarter: 2022Q2

REPORT INFORMATION
  Report Type: Spontaneous
  Country: FR (occurrence: None)
  Receive Date: 20220613
  Receipt Date: 20220613
  Transmission Date: 20220721
  Serious: Yes (Life-Threatening, Hospitalization, Other)
  Sender: FDA-Public Use
  Company Number: FR-MICRO LABS LIMITED-ML2022-02543

PATIENT
  Age: 57 Year

DRUGS (2)
  1. APIXABAN [Suspect]
     Active Substance: APIXABAN
     Indication: Congestive cardiomyopathy
  2. EVEROLIMUS [Suspect]
     Active Substance: EVEROLIMUS
     Indication: Immunosuppression
     Dosage: FOR ONE YEAR

REACTIONS (2)
  - Gastroduodenal haemorrhage [Recovered/Resolved]
  - Drug interaction [Unknown]
